FAERS Safety Report 19130195 (Version 2)
Quarter: 2023Q2

REPORT INFORMATION
  Report Type: Spontaneous
  Country: US (occurrence: US)
  Receive Date: 20210413
  Receipt Date: 20230412
  Transmission Date: 20230722
  Serious: No
  Sender: FDA-Public Use
  Company Number: US-CORCEPT THERAPEUTICS INC.-US-2020CRT000379

PATIENT

DRUGS (18)
  1. KORLYM [Suspect]
     Active Substance: MIFEPRISTONE
     Indication: Cushing^s syndrome
     Dosage: 300 MG, QD
     Route: 048
     Dates: start: 20200314, end: 20200405
  2. KORLYM [Suspect]
     Active Substance: MIFEPRISTONE
     Dosage: 600 MG, QD
     Route: 048
     Dates: start: 20200406
  3. ADVAIR HFA [Concomitant]
     Active Substance: FLUTICASONE PROPIONATE\SALMETEROL XINAFOATE
     Indication: Product used for unknown indication
     Dosage: UNK
  4. AMLODIPINE                         /00972402/ [Concomitant]
     Indication: Product used for unknown indication
     Dosage: UNK
  5. CHLORTHALIDONE [Concomitant]
     Active Substance: CHLORTHALIDONE
     Indication: Product used for unknown indication
     Dosage: UNK
  6. CLONIDINE                          /00171102/ [Concomitant]
     Indication: Product used for unknown indication
     Dosage: 0.2 MG, UNK
  7. CLONIDINE                          /00171102/ [Concomitant]
     Dosage: 0.1 MG, UNK
  8. LISINOPRIL                         /00894002/ [Concomitant]
     Indication: Product used for unknown indication
     Dosage: UNK
  9. MYCOPHENOLATE MOFETIL              /01275104/ [Concomitant]
     Indication: Product used for unknown indication
     Dosage: UNK
  10. PROAIR HFA [Concomitant]
     Active Substance: ALBUTEROL SULFATE
     Indication: Product used for unknown indication
     Dosage: UNK
  11. ELIQUIS [Concomitant]
     Active Substance: APIXABAN
     Indication: Product used for unknown indication
     Dosage: UNK
     Dates: start: 20200428
  12. ATORVASTATIN [Concomitant]
     Active Substance: ATORVASTATIN
     Indication: Product used for unknown indication
     Dosage: UNK
  13. MELATONIN                          /07129401/ [Concomitant]
     Indication: Product used for unknown indication
     Dosage: UNK, PRN
     Dates: start: 20200428
  14. VITAMIN D                          /00107901/ [Concomitant]
     Indication: Product used for unknown indication
     Dosage: UNK
  15. EPLERENONE [Concomitant]
     Active Substance: EPLERENONE
     Indication: Product used for unknown indication
  16. SULFASALAZINE [Concomitant]
     Active Substance: SULFASALAZINE
     Indication: Product used for unknown indication
  17. COVID-19 VACCINE [Concomitant]
     Indication: Product used for unknown indication
  18. CELLCEPT [Concomitant]
     Active Substance: MYCOPHENOLATE MOFETIL
     Indication: Product used for unknown indication

REACTIONS (29)
  - Vitamin D decreased [Unknown]
  - Chest discomfort [Recovered/Resolved]
  - Stress [Not Recovered/Not Resolved]
  - Tremor [Recovering/Resolving]
  - Emotional disorder [Unknown]
  - Night sweats [Not Recovered/Not Resolved]
  - Hot flush [Not Recovered/Not Resolved]
  - Application site pain [Unknown]
  - Application site pruritus [Unknown]
  - Psoriasis [Not Recovered/Not Resolved]
  - Gait disturbance [Unknown]
  - Blood cholesterol increased [Unknown]
  - Nausea [Not Recovered/Not Resolved]
  - Gastrooesophageal reflux disease [Unknown]
  - Headache [Unknown]
  - Abdominal discomfort [Recovering/Resolving]
  - Insomnia [Not Recovered/Not Resolved]
  - Blood potassium decreased [Recovered/Resolved]
  - Somnolence [Not Recovered/Not Resolved]
  - Pain [Recovering/Resolving]
  - Malaise [Not Recovered/Not Resolved]
  - Dizziness [Unknown]
  - Fatigue [Unknown]
  - Pain in extremity [Recovering/Resolving]
  - Rash pruritic [Unknown]
  - Blood pressure increased [Recovering/Resolving]
  - Swelling [Unknown]
  - Blood pressure systolic increased [Recovering/Resolving]
  - Sleep disorder [Unknown]

NARRATIVE: CASE EVENT DATE: 20200101
